FAERS Safety Report 13801744 (Version 2)
Quarter: 2017Q3

REPORT INFORMATION
  Report Type: Spontaneous
  Country: KR (occurrence: KR)
  Receive Date: 20170727
  Receipt Date: 20170825
  Transmission Date: 20171127
  Serious: No
  Sender: FDA-Public Use
  Company Number: KR-009507513-1702KOR011681

PATIENT
  Age: 84 Year
  Sex: Male
  Weight: 53 kg

DRUGS (18)
  1. TARGIN [Concomitant]
     Active Substance: NALOXONE HYDROCHLORIDE\OXYCODONE HYDROCHLORIDE
     Indication: CANCER PAIN
     Dosage: 1 TABLET, BID
     Route: 048
     Dates: start: 20161018, end: 20161027
  2. ALBIS D [Concomitant]
     Indication: PROPHYLAXIS
     Dosage: 1 TABLET, QD
     Route: 048
     Dates: start: 2013
  3. MACPERAN [Concomitant]
     Active Substance: METOCLOPRAMIDE HYDROCHLORIDE
     Indication: PROPHYLAXIS AGAINST GASTROINTESTINAL ULCER
     Dosage: 1 TABLET, TID
     Route: 048
     Dates: start: 20161018, end: 20161022
  4. PEMEDOLAC [Concomitant]
     Indication: LUNG NEOPLASM MALIGNANT
     Dosage: 581 MG, ONCE, CYCLE 1
     Route: 042
     Dates: start: 20161018, end: 20161018
  5. MAGNESIN (MAGNESIUM SULFATE) [Concomitant]
     Indication: PROPHYLAXIS
     Dosage: 10 ML, BID
     Route: 042
     Dates: start: 20161018, end: 20161018
  6. EMEND (FOSAPREPITANT DIMEGLUMINE) [Suspect]
     Active Substance: FOSAPREPITANT DIMEGLUMINE
     Indication: PROPHYLAXIS OF NAUSEA AND VOMITING
     Dosage: 150 MG, ONCE
     Route: 042
     Dates: start: 20161018, end: 20161018
  7. PARAMACET [Concomitant]
     Active Substance: ACETAMINOPHEN\TRAMADOL
     Indication: CANCER PAIN
     Dosage: 1 TABLET, QD
     Route: 048
     Dates: start: 20161018, end: 20161027
  8. FOLIC ACID. [Concomitant]
     Active Substance: FOLIC ACID
     Indication: ANAEMIA PROPHYLAXIS
     Dosage: 1 MG (1 TABLET), QD
     Route: 048
     Dates: start: 20161018
  9. POTASSIUM CHLORIDE. [Concomitant]
     Active Substance: POTASSIUM CHLORIDE
     Indication: PROPHYLAXIS
     Dosage: 10 ML, BID
     Route: 042
     Dates: start: 20161018, end: 20161018
  10. HYDROCHLOROTHIAZIDE, LOSARTAN POTASSIUM [Concomitant]
     Indication: HYPERTENSION
     Dosage: 1 TABLET, QD
     Route: 048
     Dates: start: 2013
  11. AMDIPINE [Concomitant]
     Indication: HYPERTENSION
     Dosage: 1 TABLET (5 MG), QD
     Route: 048
     Dates: start: 2013
  12. DUALCET [Concomitant]
     Indication: ANALGESIC THERAPY
     Dosage: 1 TABLET, BID
     Route: 048
     Dates: start: 2013
  13. DUPHALAC [Concomitant]
     Active Substance: LACTULOSE
     Indication: CONSTIPATION PROPHYLAXIS
     Dosage: 15 ML, TID
     Dates: start: 20161018, end: 20161027
  14. CISPLATIN. [Concomitant]
     Active Substance: CISPLATIN
     Indication: LUNG NEOPLASM MALIGNANT
     Dosage: 87 MG, ONCE, CYCLE 1
     Route: 042
     Dates: start: 20161018, end: 20161018
  15. ALOXI [Concomitant]
     Active Substance: PALONOSETRON HYDROCHLORIDE
     Indication: PROPHYLAXIS OF NAUSEA AND VOMITING
     Dosage: 5 ML, ONCE
     Route: 042
     Dates: start: 20161018, end: 20161018
  16. LASIX [Concomitant]
     Active Substance: FUROSEMIDE
     Indication: PROPHYLAXIS
     Dosage: 20 MG, ONCE, STRENGTH: 20MG/2ML
     Route: 042
     Dates: start: 20161018, end: 20161018
  17. DEXAMETHASONE SODIUM PHOSPHATE. [Concomitant]
     Active Substance: DEXAMETHASONE SODIUM PHOSPHATE
     Indication: PROPHYLAXIS OF NAUSEA AND VOMITING
     Dosage: 5 MG, ONCE, STRENGTH: 5 MG/ML
     Route: 042
     Dates: start: 20161018, end: 20161018
  18. MAGMIL [Concomitant]
     Active Substance: MAGNESIUM HYDROXIDE
     Indication: CONSTIPATION PROPHYLAXIS
     Dosage: 500 MG(1 TABLET), TID
     Route: 048
     Dates: start: 20161018, end: 20161027

REACTIONS (1)
  - Pain in extremity [Recovered/Resolved with Sequelae]

NARRATIVE: CASE EVENT DATE: 20161018
